FAERS Safety Report 19910178 (Version 1)
Quarter: 2021Q4

REPORT INFORMATION
  Report Type: Report from Study
  Country: None (occurrence: UY)
  Receive Date: 20211003
  Receipt Date: 20211003
  Transmission Date: 20220304
  Serious: Yes (Life-Threatening, Hospitalization, Other)
  Sender: FDA-Public Use
  Company Number: UY-ABBVIE-21K-168-4102853-00

PATIENT
  Age: 74 Year
  Sex: Female

DRUGS (1)
  1. HUMIRA [Suspect]
     Active Substance: ADALIMUMAB
     Indication: Rheumatoid arthritis
     Route: 058
     Dates: start: 20120514, end: 2021

REACTIONS (7)
  - Infarction [Unknown]
  - Loss of consciousness [Recovered/Resolved]
  - Arterial occlusive disease [Recovering/Resolving]
  - Gait disturbance [Not Recovered/Not Resolved]
  - Dyspepsia [Not Recovered/Not Resolved]
  - Loss of personal independence in daily activities [Unknown]
  - Hypertension [Unknown]

NARRATIVE: CASE EVENT DATE: 20210801
